FAERS Safety Report 16531488 (Version 1)
Quarter: 2019Q3

REPORT INFORMATION
  Report Type: Spontaneous
  Country: US (occurrence: US)
  Receive Date: 20190704
  Receipt Date: 20190704
  Transmission Date: 20191004
  Serious: No
  Sender: FDA-Public Use
  Company Number: US-BLUE EARTH DIAGNOSTICS LIMITED-BED-000017-2019

PATIENT
  Sex: Male

DRUGS (1)
  1. AXUMIN [Suspect]
     Active Substance: FLUCICLOVINE F-18
     Indication: SCAN
     Dosage: UNK
     Route: 065
     Dates: start: 20190116

REACTIONS (1)
  - Scan abnormal [Unknown]
